FAERS Safety Report 14675014 (Version 1)
Quarter: 2018Q1

REPORT INFORMATION
  Report Type: Report from Study
  Country: BR (occurrence: BR)
  Receive Date: 20180323
  Receipt Date: 20180323
  Transmission Date: 20180509
  Serious: Yes (Death, Life-Threatening, Hospitalization)
  Sender: FDA-Public Use
  Company Number: PHHY2015BR073102

PATIENT
  Sex: Female
  Weight: 48 kg

DRUGS (1)
  1. ACLASTA [Suspect]
     Active Substance: ZOLEDRONIC ACID
     Indication: PRODUCT USED FOR UNKNOWN INDICATION
     Dosage: 1 DF (5MG/100ML), Q12MO
     Route: 042

REACTIONS (7)
  - Lung disorder [Fatal]
  - Influenza [Recovering/Resolving]
  - Respiratory disorder [Recovering/Resolving]
  - Malaise [Recovering/Resolving]
  - Body height decreased [Unknown]
  - Asthma [Recovering/Resolving]
  - Concomitant disease aggravated [Fatal]
